FAERS Safety Report 13347908 (Version 1)
Quarter: 2017Q1

REPORT INFORMATION
  Report Type: Other
  Country: GB (occurrence: TR)
  Receive Date: 20170318
  Receipt Date: 20170318
  Transmission Date: 20170428
  Serious: Yes (Life-Threatening, Hospitalization, Other)
  Sender: FDA-Public Use
  Company Number: TR-INTERNATIONAL MEDICATION SYSTEMS, LIMITED-1064370

PATIENT
  Age: 1 Day
  Sex: Male
  Weight: 3.6 kg

DRUGS (1)
  1. GLUCOSE [Suspect]
     Active Substance: DEXTROSE
     Indication: PARENTERAL NUTRITION
     Route: 042

REACTIONS (3)
  - Extravasation [Recovered/Resolved]
  - Blood glucose increased [Recovered/Resolved]
  - Cardiac tamponade [Recovered/Resolved]
